FAERS Safety Report 6973210-7 (Version None)
Quarter: 2010Q3

REPORT INFORMATION
  Report Type: 
  Country: None (occurrence: None)
  Receive Date: 20100909
  Receipt Date: 20100902
  Transmission Date: 20110219
  Serious: Yes (Hospitalization, Other)
  Sender: FDA-Public Use
  Company Number: JP-JNJFOC-20100901614

PATIENT
  Age: 34 Year
  Sex: Female

DRUGS (10)
  1. RISPERDAL [Suspect]
     Indication: HALLUCINATION, AUDITORY
     Route: 048
  2. RISPERDAL [Suspect]
     Indication: HALLUCINATION
     Route: 048
  3. HALOPERIDOL [Suspect]
     Indication: MOOD SWINGS
     Route: 042
  4. HALOPERIDOL [Suspect]
     Indication: AGITATION
     Route: 042
  5. HALOPERIDOL [Suspect]
     Indication: INCOHERENT
     Route: 042
  6. HALOPERIDOL [Suspect]
     Indication: BLUNTED AFFECT
     Route: 042
  7. CHLORPROMAZINE [Concomitant]
     Indication: HALLUCINATION, AUDITORY
     Route: 065
  8. LEVOMEPROMAZINE [Concomitant]
     Indication: HALLUCINATION, AUDITORY
     Route: 065
  9. BIPERIDEN HYDROCHLORIDE TAB [Concomitant]
     Route: 065
  10. CARBAMAZEPINE [Concomitant]
     Route: 065

REACTIONS (1)
  - MANIA [None]
